FAERS Safety Report 11663656 (Version 1)
Quarter: 2015Q4

REPORT INFORMATION
  Report Type: Spontaneous
  Country: US (occurrence: None)
  Receive Date: 20151026
  Receipt Date: 20151026
  Transmission Date: 20160304
  Serious: No
  Sender: FDA-Public Use
  Company Number: None

PATIENT
  Age: 53 Year
  Sex: Male
  Weight: 72.58 kg

DRUGS (2)
  1. SIMVASTATIN. [Suspect]
     Active Substance: SIMVASTATIN
     Indication: BLOOD CHOLESTEROL INCREASED
     Route: 048
     Dates: start: 20150824, end: 20150831
  2. VALSARTAN HZTC [Concomitant]

REACTIONS (3)
  - Product substitution issue [None]
  - Pyrexia [None]
  - Arthralgia [None]

NARRATIVE: CASE EVENT DATE: 20150830
